FAERS Safety Report 6749958-6 (Version None)
Quarter: 2010Q2

REPORT INFORMATION
  Report Type: 
  Country: None (occurrence: None)
  Receive Date: 20100601
  Receipt Date: 20100524
  Transmission Date: 20101027
  Serious: Yes (Death, Hospitalization, Other)
  Sender: FDA-Public Use
  Company Number: US-ELI_LILLY_AND_COMPANY-US201005007315

PATIENT
  Age: 76 Year
  Sex: Female

DRUGS (2)
  1. EFFIENT [Suspect]
     Indication: STENT PLACEMENT
     Dosage: 60 MG, OTHER
  2. EFFIENT [Suspect]
     Dosage: 10 MG, DAILY (1/D)

REACTIONS (5)
  - BLOOD PRESSURE DECREASED [None]
  - CARDIAC PACEMAKER INSERTION [None]
  - DEATH [None]
  - LABILE BLOOD PRESSURE [None]
  - PERICARDIAL EFFUSION [None]
